FAERS Safety Report 4485420-1 (Version None)
Quarter: 2004Q4

REPORT INFORMATION
  Report Type: 
  Country: None (occurrence: None)
  Receive Date: 20041025
  Receipt Date: 20041025
  Transmission Date: 20050328
  Serious: Yes (Other)
  Sender: FDA-Public Use
  Company Number: None

PATIENT
  Sex: Male
  Weight: 74.8435 kg

DRUGS (2)
  1. NEURONTIN [Suspect]
     Indication: ARTHRALGIA
     Dosage: 300MG PO QD
     Route: 048
  2. NEURONTIN [Suspect]
     Indication: BACK PAIN
     Dosage: 300MG PO QD
     Route: 048

REACTIONS (2)
  - CONDITION AGGRAVATED [None]
  - PAIN [None]
